FAERS Safety Report 7577886-5 (Version None)
Quarter: 2011Q2

REPORT INFORMATION
  Report Type: 
  Country: None (occurrence: None)
  Receive Date: 20110628
  Receipt Date: 20110621
  Transmission Date: 20111010
  Serious: Yes (Death, Hospitalization)
  Sender: FDA-Public Use
  Company Number: US-ROCHE-778840

PATIENT
  Age: 50 Year
  Sex: Female

DRUGS (13)
  1. COMPAZINE [Concomitant]
  2. BEVACIZUMAB [Suspect]
     Indication: OVARIAN EPITHELIAL CANCER
     Dosage: OVER 30 TO 90 MINUTES, ON DAY 1 OF EVERY 3 WEEK CYCLE. TOTAL DOSE: 1056 MG.
     Route: 042
     Dates: start: 20100831
  3. PACLITAXEL [Suspect]
     Indication: OVARIAN EPITHELIAL CANCER
     Dosage: OVER 1 HOUR ON DAY 1, 8 AND 15 OF EVERY 3 WEEKS CYCLE. TOTAL DOSE: 80 MG
     Route: 042
     Dates: start: 20100831
  4. CARBOPLATIN [Suspect]
     Route: 042
  5. VALIUM [Concomitant]
  6. BEVACIZUMAB [Suspect]
     Route: 042
  7. CARBOPLATIN [Suspect]
     Indication: OVARIAN EPITHELIAL CANCER
     Dosage: DOSE: AUC6 ON DAY 1 OF EVERY 3 WEEK CYCLE. TOTAL DOSE: 671 MG
     Route: 042
     Dates: start: 20100831
  8. PAXIL [Concomitant]
  9. DILAUDID [Concomitant]
  10. COLACE [Concomitant]
  11. PACLITAXEL [Suspect]
     Route: 042
  12. ZOFRAN [Concomitant]
  13. KLONOPIN [Concomitant]

REACTIONS (3)
  - PNEUMONIA [None]
  - SUDDEN DEATH [None]
  - DEPRESSION [None]
